FAERS Safety Report 13818332 (Version 1)
Quarter: 2017Q3

REPORT INFORMATION
  Report Type: Spontaneous
  Country: US (occurrence: US)
  Receive Date: 20170731
  Receipt Date: 20170731
  Transmission Date: 20171127
  Serious: No
  Sender: FDA-Public Use
  Company Number: US-ROCHE-606232

PATIENT
  Age: 62 Year
  Sex: Female
  Weight: 58.1 kg

DRUGS (1)
  1. BONIVA [Suspect]
     Active Substance: IBANDRONATE SODIUM
     Indication: OSTEOPOROSIS
     Dosage: STRENGTH REPORTED AS 3MG/3ML
     Route: 042

REACTIONS (4)
  - Phlebitis [Recovered/Resolved]
  - Extravasation [Unknown]
  - Vascular access complication [Unknown]
  - Injection site inflammation [Unknown]

NARRATIVE: CASE EVENT DATE: 20081229
